FAERS Safety Report 7931129-9 (Version None)
Quarter: 2011Q4

REPORT INFORMATION
  Report Type: 
  Country: None (occurrence: None)
  Receive Date: 20111118
  Receipt Date: 20111118
  Transmission Date: 20120403
  Serious: Yes (Other)
  Sender: FDA-Public Use
  Company Number: None

PATIENT
  Age: 60 Year
  Sex: Male

DRUGS (5)
  1. ENALAPRIL MALEATE [Concomitant]
  2. ATENOLOL [Concomitant]
  3. ATRPLA [Concomitant]
  4. HYDROCHLOROTHIAZIDE [Concomitant]
  5. VERAPAMIL [Suspect]
     Indication: HYPERTENSION
     Dosage: 360 MG QDAY PO
     Route: 048
     Dates: start: 20100101, end: 20111116

REACTIONS (1)
  - DIARRHOEA [None]
